FAERS Safety Report 12140970 (Version 1)
Quarter: 2016Q1

REPORT INFORMATION
  Report Type: Spontaneous
  Country: FR (occurrence: FR)
  Receive Date: 20160303
  Receipt Date: 20160303
  Transmission Date: 20160526
  Serious: Yes (Hospitalization, Other)
  Sender: FDA-Public Use
  Company Number: FR-009507513-2004-113821-NL

PATIENT
  Age: 19 Year
  Sex: Female
  Weight: 53 kg

DRUGS (6)
  1. SUSTIVA [Interacting]
     Active Substance: EFAVIRENZ
     Indication: HIV INFECTION
     Dosage: 600 MG, QD
     Route: 048
     Dates: start: 20031215
  2. EPIVIR [Concomitant]
     Active Substance: LAMIVUDINE
     Indication: HIV INFECTION
     Dosage: ACTION TAKEN: NONE, FREQUENCY: QD
     Route: 048
     Dates: start: 20031215
  3. BACTRIM [Concomitant]
     Active Substance: SULFAMETHOXAZOLE\TRIMETHOPRIM
     Indication: HIV INFECTION
     Dosage: ACTION TAKEN: NONE, FREQUENCY: QD
     Route: 048
     Dates: start: 20031124
  4. IMPLANON [Suspect]
     Active Substance: ETONOGESTREL
     Indication: CONTRACEPTION
     Dosage: UNK DF, UNK
     Route: 058
     Dates: start: 200107, end: 20040322
  5. VIDEX [Concomitant]
     Active Substance: DIDANOSINE
     Indication: HIV INFECTION
     Dosage: ACTION TAKEN: NONE, FREQUENCY: QD
     Route: 048
     Dates: start: 20031215
  6. LEDERFOLINE [Concomitant]
     Active Substance: LEUCOVORIN CALCIUM
     Indication: HIV INFECTION
     Dosage: ACTION TAKEN: NONE
     Dates: start: 20031117

REACTIONS (4)
  - Abortion induced [Recovered/Resolved]
  - Therapeutic response decreased [Recovered/Resolved]
  - Pregnancy with implant contraceptive [Recovered/Resolved]
  - Drug interaction [Recovered/Resolved]

NARRATIVE: CASE EVENT DATE: 20040125
